FAERS Safety Report 7316091-4 (Version None)
Quarter: 2011Q1

REPORT INFORMATION
  Report Type: 
  Country: None (occurrence: None)
  Receive Date: 20110225
  Receipt Date: 20110217
  Transmission Date: 20110831
  Serious: Yes (Life-Threatening, Hospitalization)
  Sender: FDA-Public Use
  Company Number: US-ELI_LILLY_AND_COMPANY-US201102005511

PATIENT
  Sex: Female

DRUGS (12)
  1. ADVAIR DISKUS 100/50 [Concomitant]
  2. FORTEO [Suspect]
     Dosage: 20 UG, DAILY (1/D)
     Dates: start: 20110125
  3. SPIRIVA [Concomitant]
  4. CARDIZEM [Concomitant]
  5. LEXAPRO [Concomitant]
  6. K-DUR [Concomitant]
  7. CORTEF [Concomitant]
  8. ALBUTEROL [Concomitant]
  9. XANAX [Concomitant]
  10. PRILOSEC [Concomitant]
  11. HYDROCODONE BITARTRATE [Concomitant]
  12. FORTEO [Suspect]
     Indication: OSTEOPOROSIS
     Dosage: 20 UG, DAILY (1/D)
     Dates: start: 20101101, end: 20101225

REACTIONS (3)
  - DYSPNOEA [None]
  - CARBON DIOXIDE INCREASED [None]
  - AMNESIA [None]
